FAERS Safety Report 16633380 (Version 3)
Quarter: 2022Q2

REPORT INFORMATION
  Report Type: Spontaneous
  Country: NL (occurrence: NL)
  Receive Date: 20190725
  Receipt Date: 20220418
  Transmission Date: 20220721
  Serious: Yes (Hospitalization, Other)
  Sender: FDA-Public Use
  Company Number: PHHY2019NL171293

PATIENT
  Age: 56 Year
  Sex: Female

DRUGS (14)
  1. FOSINOPRIL SODIUM [Interacting]
     Active Substance: FOSINOPRIL SODIUM
     Indication: Product used for unknown indication
     Dosage: 10 MG, QD
     Route: 065
     Dates: start: 201705
  2. ASPIRIN [Interacting]
     Active Substance: ASPIRIN
     Indication: Product used for unknown indication
     Dosage: 80 MG, QD
     Route: 065
     Dates: start: 201705
  3. OXAZEPAM [Interacting]
     Active Substance: OXAZEPAM
     Indication: Product used for unknown indication
     Dosage: 80 TO 90 MG
     Route: 065
  4. OXAZEPAM [Interacting]
     Active Substance: OXAZEPAM
     Dosage: MORE THAN 10 YEARS
     Route: 065
  5. OXAZEPAM [Interacting]
     Active Substance: OXAZEPAM
     Dosage: 40 MG, QD
     Route: 065
     Dates: start: 20170501
  6. OXAZEPAM [Interacting]
     Active Substance: OXAZEPAM
     Dosage: 40 MG, QD
     Route: 065
     Dates: start: 201705
  7. QUETIAPINE [Interacting]
     Active Substance: QUETIAPINE
     Indication: Sleep disorder
     Dosage: 25 MG, QD
     Route: 065
     Dates: start: 201705
  8. SIMVASTATIN [Interacting]
     Active Substance: SIMVASTATIN
     Indication: Product used for unknown indication
     Dosage: 40 MG, QD
     Route: 065
     Dates: start: 201705
  9. TRANYLCYPROMINE SULFATE [Interacting]
     Active Substance: TRANYLCYPROMINE SULFATE
     Indication: Anxiety
     Dosage: 40 MG, 40MG OR 80 MG
     Route: 065
  10. TRANYLCYPROMINE SULFATE [Interacting]
     Active Substance: TRANYLCYPROMINE SULFATE
     Indication: Depression
     Dosage: 50 MG, 20-10-10-10 MG
     Route: 065
     Dates: start: 2016
  11. SYNAPAUSE [Concomitant]
     Indication: Product used for unknown indication
     Dosage: 1 MG, QD
     Route: 065
  12. TICAGRELOR [Concomitant]
     Active Substance: TICAGRELOR
     Indication: Product used for unknown indication
     Dosage: 90 MG, BID
     Route: 065
     Dates: start: 201705
  13. PANTOPRAZOLE [Concomitant]
     Active Substance: PANTOPRAZOLE
     Indication: Product used for unknown indication
     Dosage: 40 MG, QD
     Route: 065
     Dates: start: 201705
  14. LABETALOL [Concomitant]
     Active Substance: LABETALOL\LABETALOL HYDROCHLORIDE
     Indication: Hypertension
     Dosage: 1 DF, PRN
     Route: 065

REACTIONS (17)
  - Left ventricular dysfunction [Not Recovered/Not Resolved]
  - Myocardial infarction [Unknown]
  - Hypertensive crisis [Unknown]
  - Suicidal ideation [Recovering/Resolving]
  - Bradycardia [Unknown]
  - Insomnia [Not Recovered/Not Resolved]
  - Sleep disorder [Recovering/Resolving]
  - Blood pressure diastolic increased [Unknown]
  - Alopecia [Not Recovered/Not Resolved]
  - Orthostatic hypotension [Unknown]
  - Weight increased [Not Recovered/Not Resolved]
  - Depression [Recovering/Resolving]
  - Potentiating drug interaction [Unknown]
  - Contraindicated product administered [Unknown]
  - Therapeutic response unexpected [Unknown]
  - Intercepted medication error [Unknown]
  - Labelled drug-food interaction medication error [Unknown]

NARRATIVE: CASE EVENT DATE: 20170101
